FAERS Safety Report 9726208 (Version 1)
Quarter: 2013Q4

REPORT INFORMATION
  Report Type: Spontaneous
  Country: CH (occurrence: CH)
  Receive Date: 20131203
  Receipt Date: 20131203
  Transmission Date: 20140711
  Serious: Yes (Hospitalization)
  Sender: FDA-Public Use
  Company Number: CH-PFIZER INC-2013338795

PATIENT
  Age: 86 Year
  Sex: Male
  Weight: 46 kg

DRUGS (8)
  1. CARDURA XL [Suspect]
     Dosage: 4 MG, 1X/DAY
     Route: 048
     Dates: end: 20131026
  2. AMLODIPIN [Suspect]
     Dosage: 5 MG, 1X/DAY
     Route: 048
  3. TORASEMIDE [Suspect]
     Dosage: 5 MG, 1X/DAY
     Route: 048
  4. RISPERDAL [Suspect]
     Dosage: 1 MG, 2X/DAY
     Route: 048
  5. PAROXETIN [Suspect]
     Dosage: 20 MG, 1X/DAY
     Route: 048
  6. TRITTICO [Suspect]
     Dosage: 100 MG, 1X/DAY
     Route: 048
  7. ASPIRIN CARDIO [Concomitant]
     Dosage: 100 MG, DAILY
     Route: 048
  8. NEXIUM [Concomitant]
     Dosage: 40 MG, DAILY
     Route: 048

REACTIONS (5)
  - Orthostatic hypotension [Recovered/Resolved]
  - Syncope [Recovered/Resolved]
  - Extrapyramidal disorder [Recovering/Resolving]
  - Muscle rigidity [Recovering/Resolving]
  - Leukoencephalopathy [Unknown]
